FAERS Safety Report 16500236 (Version 1)
Quarter: 2019Q2

REPORT INFORMATION
  Report Type: Spontaneous
  Country: US (occurrence: US)
  Receive Date: 20190520
  Receipt Date: 20190520
  Transmission Date: 20190711
  Serious: No
  Sender: FDA-Public Use
  Company Number: None

PATIENT
  Age: 46 Year
  Sex: Female

DRUGS (1)
  1. HUMIRA [Suspect]
     Active Substance: ADALIMUMAB
     Indication: COLITIS ULCERATIVE
     Route: 058
     Dates: start: 20180913, end: 20190429

REACTIONS (4)
  - Aphonia [None]
  - Lupus-like syndrome [None]
  - Nervous system disorder [None]
  - Arthralgia [None]

NARRATIVE: CASE EVENT DATE: 20190320
